FAERS Safety Report 7319275-4 (Version None)
Quarter: 2011Q1

REPORT INFORMATION
  Report Type: 
  Country: None (occurrence: None)
  Receive Date: 20110228
  Receipt Date: 20100107
  Transmission Date: 20110831
  Serious: No
  Sender: FDA-Public Use
  Company Number: A0838297A

PATIENT
  Age: 10 Year
  Sex: Male

DRUGS (2)
  1. ABILIFY [Concomitant]
  2. LAMICTAL [Suspect]
     Indication: BIPOLAR DISORDER
     Route: 048
     Dates: end: 20100102

REACTIONS (1)
  - RASH [None]
